FAERS Safety Report 21955800 (Version 2)
Quarter: 2024Q4

REPORT INFORMATION
  Report Type: Report from Study
  Country: US (occurrence: US)
  Receive Date: 20230206
  Receipt Date: 20241015
  Transmission Date: 20250115
  Serious: Yes (Other)
  Sender: NOVARTIS
  Company Number: US-002147023-NVSC2023US023803

PATIENT
  Sex: Female

DRUGS (1)
  1. XIIDRA [Suspect]
     Active Substance: LIFITEGRAST
     Indication: Dry eye
     Dosage: 1 DOSAGE FORM, BID OU (TOPICAL DROP)
     Route: 050
     Dates: start: 20210617

REACTIONS (2)
  - Sarcoidosis [Unknown]
  - Eye disorder [Unknown]
